FAERS Safety Report 11552868 (Version 2)
Quarter: 2015Q3

REPORT INFORMATION
  Report Type: Spontaneous
  Country: CN (occurrence: CN)
  Receive Date: 20150925
  Receipt Date: 20150930
  Transmission Date: 20151125
  Serious: Yes (Other)
  Sender: FDA-Public Use
  Company Number: CN-ELI_LILLY_AND_COMPANY-CN201509006959

PATIENT
  Age: 77 Year
  Sex: Female
  Weight: 79 kg

DRUGS (7)
  1. FELODIPINE. [Concomitant]
     Active Substance: FELODIPINE
  2. GLUCOBAY [Concomitant]
     Active Substance: ACARBOSE
     Dosage: 2 DF, QD
  3. WARFARIN [Concomitant]
     Active Substance: WARFARIN
  4. HUMULIN 70/30 [Suspect]
     Active Substance: INSULIN HUMAN
     Indication: DIABETES MELLITUS
     Dosage: 12 DF, BID
     Route: 058
     Dates: start: 201401
  5. CAPTOPRIL. [Concomitant]
     Active Substance: CAPTOPRIL
  6. MELBIN                             /00082702/ [Concomitant]
     Active Substance: METFORMIN HYDROCHLORIDE
     Dosage: 1 DF, QD
  7. TELMISARTAN. [Concomitant]
     Active Substance: TELMISARTAN

REACTIONS (7)
  - Anuria [Recovering/Resolving]
  - Blood pressure increased [Unknown]
  - Oedema peripheral [Unknown]
  - Injection site haemorrhage [Unknown]
  - Blood glucose abnormal [Unknown]
  - Dizziness [Unknown]
  - Malaise [Unknown]

NARRATIVE: CASE EVENT DATE: 201507
